FAERS Safety Report 5002673-1 (Version None)
Quarter: 2006Q2

REPORT INFORMATION
  Report Type: 
  Country: None (occurrence: None)
  Receive Date: 20060510
  Receipt Date: 20060211
  Transmission Date: 20061013
  Serious: Yes (Disabling)
  Sender: FDA-Public Use
  Company Number: 2006022799

PATIENT
  Age: 53 Year
  Sex: Male

DRUGS (1)
  1. LIPITOR [Suspect]
     Indication: ILL-DEFINED DISORDER
     Dates: start: 19960101

REACTIONS (3)
  - IMPAIRED WORK ABILITY [None]
  - MUSCULAR WEAKNESS [None]
  - PAIN IN EXTREMITY [None]
